FAERS Safety Report 6794786-9 (Version None)
Quarter: 2010Q2

REPORT INFORMATION
  Report Type: 
  Country: None (occurrence: None)
  Receive Date: 20100625
  Receipt Date: 20100525
  Transmission Date: 20101027
  Serious: No
  Sender: FDA-Public Use
  Company Number: US-BAYER-201016069BCC

PATIENT
  Age: 72 Year
  Sex: Female
  Weight: 64 kg

DRUGS (10)
  1. ALEVE [Suspect]
     Indication: ARTHRALGIA
     Dosage: UNIT DOSE: 220 MG
     Route: 048
     Dates: start: 20090901
  2. MICARDIS [Concomitant]
     Route: 065
  3. HTC [Concomitant]
     Route: 065
  4. CARVEDILOL [Concomitant]
     Route: 065
  5. PEROXTATIN [Concomitant]
     Route: 065
  6. ACTONEL [Concomitant]
     Dosage: TOTAL DAILY DOSE: 1 DF  UNIT DOSE: 1 DF
     Route: 065
  7. LEVISTATIN [Concomitant]
     Route: 065
  8. VITAMIN D [Concomitant]
     Route: 065
  9. MULTI-VITAMINS [Concomitant]
     Route: 065
  10. CALTRATE + D [Concomitant]
     Route: 065

REACTIONS (1)
  - HEPATIC FUNCTION ABNORMAL [None]
